FAERS Safety Report 22019769 (Version 1)
Quarter: 2023Q1

REPORT INFORMATION
  Report Type: Spontaneous
  Country: US (occurrence: US)
  Receive Date: 20230222
  Receipt Date: 20230222
  Transmission Date: 20230417
  Serious: No
  Sender: FDA-Public Use
  Company Number: US-BEH-2023155237

PATIENT
  Sex: Male

DRUGS (2)
  1. PRIVIGEN [Suspect]
     Active Substance: HUMAN IMMUNOGLOBULIN G
     Indication: Autoimmune neuropathy
     Dosage: UNK
     Route: 058
  2. PRIVIGEN [Suspect]
     Active Substance: HUMAN IMMUNOGLOBULIN G
     Dosage: UNK
     Route: 065
     Dates: start: 20230130

REACTIONS (8)
  - Hypertension [Not Recovered/Not Resolved]
  - Head discomfort [Unknown]
  - Chest pain [Unknown]
  - Dyspnoea [Unknown]
  - Headache [Unknown]
  - No adverse event [Unknown]
  - Off label use [Unknown]
  - Off label use [Unknown]

NARRATIVE: CASE EVENT DATE: 20230101
